FAERS Safety Report 11910852 (Version 1)
Quarter: 2016Q1

REPORT INFORMATION
  Report Type: Spontaneous
  Country: US (occurrence: None)
  Receive Date: 20160111
  Receipt Date: 20160111
  Transmission Date: 20160526
  Serious: Yes (Life-Threatening)
  Sender: FDA-Public Use
  Company Number: None

PATIENT
  Age: 67 Year
  Sex: Female
  Weight: 48.54 kg

DRUGS (3)
  1. HYDROCOD/ACETAM 5-325MG MALLINCKRODT [Suspect]
     Active Substance: ACETAMINOPHEN\HYDROCODONE
     Indication: SCOLIOSIS
     Dosage: 1 PILL
     Route: 048
     Dates: start: 20151230, end: 20160103
  2. HYDROCOD/ACETAM 5-325MG MALLINCKRODT [Suspect]
     Active Substance: ACETAMINOPHEN\HYDROCODONE
     Indication: BACK INJURY
     Dosage: 1 PILL
     Route: 048
     Dates: start: 20151230, end: 20160103
  3. ACETAMINOPHEN. [Concomitant]
     Active Substance: ACETAMINOPHEN

REACTIONS (6)
  - Diarrhoea [None]
  - Presyncope [None]
  - Abdominal pain upper [None]
  - Malaise [None]
  - Product quality issue [None]
  - Asthenia [None]

NARRATIVE: CASE EVENT DATE: 20151230
